FAERS Safety Report 6141843-6 (Version None)
Quarter: 2009Q2

REPORT INFORMATION
  Report Type: 
  Country: None (occurrence: None)
  Receive Date: 20090402
  Receipt Date: 20090402
  Transmission Date: 20091009
  Serious: Yes (Other)
  Sender: FDA-Public Use
  Company Number: US-PFIZER INC-2007035032

PATIENT
  Sex: Female
  Weight: 90.909 kg

DRUGS (6)
  1. CHANTIX [Suspect]
     Indication: SMOKING CESSATION THERAPY
     Dates: start: 20070423
  2. ACEON [Concomitant]
  3. LEXAPRO [Concomitant]
  4. LIPITOR [Concomitant]
  5. ACETYLSALICYLIC ACID [Concomitant]
  6. XANAX [Concomitant]

REACTIONS (2)
  - NERVOUSNESS [None]
  - OBSESSIVE-COMPULSIVE DISORDER [None]
